FAERS Safety Report 25357197 (Version 2)
Quarter: 2025Q2

REPORT INFORMATION
  Report Type: Spontaneous
  Country: FR (occurrence: FR)
  Receive Date: 20250526
  Receipt Date: 20250530
  Transmission Date: 20250716
  Serious: Yes (Other)
  Sender: BOEHRINGER INGELHEIM
  Company Number: None

PATIENT
  Age: 68 Year
  Sex: Male

DRUGS (6)
  1. JARDIANCE [Suspect]
     Active Substance: EMPAGLIFLOZIN
     Indication: Fungal infection
     Dates: start: 20240528
  2. METFORMIN HYDROCHLORIDE [Concomitant]
     Active Substance: METFORMIN HYDROCHLORIDE
     Indication: Product used for unknown indication
  3. LOPERAMIDE HYDROCHLORIDE [Concomitant]
     Active Substance: LOPERAMIDE HYDROCHLORIDE
     Indication: Product used for unknown indication
  4. CANDESARTAN CILEXETIL\HYDROCHLOROTHIAZIDE [Concomitant]
     Active Substance: CANDESARTAN CILEXETIL\HYDROCHLOROTHIAZIDE
     Indication: Product used for unknown indication
  5. SIMVASTATIN [Concomitant]
     Active Substance: SIMVASTATIN
     Indication: Product used for unknown indication
  6. GLICLAZIDE [Concomitant]
     Active Substance: GLICLAZIDE
     Indication: Product used for unknown indication

REACTIONS (1)
  - Fungal infection [Not Recovered/Not Resolved]

NARRATIVE: CASE EVENT DATE: 20240615
